FAERS Safety Report 9051544 (Version 1)
Quarter: 2013Q1

REPORT INFORMATION
  Report Type: Spontaneous
  Country: US (occurrence: US)
  Receive Date: 20130207
  Receipt Date: 20130207
  Transmission Date: 20140127
  Serious: Yes (Life-Threatening, Hospitalization, Disabling, Other)
  Sender: FDA-Public Use
  Company Number: US-009507513-98070183

PATIENT
  Age: 43 None
  Sex: Female
  Weight: 58.96 kg

DRUGS (24)
  1. SINGULAIR [Suspect]
     Indication: ASTHMA
     Dosage: 10 MG DAILY IN THE MORNING
     Route: 048
     Dates: start: 199803, end: 199803
  2. SINGULAIR [Suspect]
     Dosage: 10 MG, QD
     Route: 048
     Dates: start: 19980603, end: 19980612
  3. VITAMIN A [Concomitant]
     Dates: end: 19980623
  4. THEO-DUR [Concomitant]
     Dosage: 1000 MG, QD
     Dates: end: 19980623
  5. SEREVENT [Concomitant]
     Dosage: 2 BID
     Route: 055
     Dates: end: 19980623
  6. ATROVENT [Concomitant]
     Dosage: 2 QUID
     Route: 055
     Dates: start: 199506, end: 19980623
  7. ACCOLATE [Concomitant]
     Dosage: 40 MG, QD
  8. TYLENOL [Concomitant]
     Dates: end: 19980623
  9. BENADRYL [Concomitant]
     Dosage: UNK UNK, PRN
     Dates: end: 19980623
  10. PROVENTIL [Concomitant]
     Dosage: UNK UNK, QID
     Route: 055
     Dates: end: 19980623
  11. ZYRTEC [Concomitant]
     Dosage: 1 PRN
     Dates: end: 19980623
  12. METICORTEN [Concomitant]
     Route: 048
     Dates: start: 1988, end: 19980603
  13. METICORTEN [Concomitant]
     Dosage: 20 MG, QD
     Dates: start: 199807
  14. METICORTEN [Concomitant]
     Dosage: 180 MG, UNK
     Dates: end: 19980623
  15. AZMACORT [Concomitant]
     Dosage: 4 QID
     Route: 055
     Dates: start: 199506, end: 19980623
  16. ASTELIN (AZELASTINE HYDROCHLORIDE) [Concomitant]
     Dosage: 2
     Route: 055
     Dates: end: 19980623
  17. NASALCROM [Concomitant]
     Dosage: UNK UNK, QID
     Route: 055
     Dates: end: 19980623
  18. VITAMIN B (UNSPECIFIED) [Concomitant]
     Dates: end: 19980623
  19. ASCORBIC ACID [Concomitant]
     Dates: end: 19980623
  20. BECONASE [Concomitant]
     Dosage: UNK UNK, PRN
     Dates: end: 19980623
  21. SODIUM CHLORIDE [Concomitant]
  22. FLONASE [Concomitant]
     Dosage: UNK UNK, PRN
     Route: 055
     Dates: end: 19980623
  23. CIPRO [Concomitant]
     Dates: start: 19980309, end: 19980623
  24. TROVAN [Concomitant]

REACTIONS (30)
  - Hepatic failure [Recovering/Resolving]
  - Allergic hepatitis [Recovering/Resolving]
  - Cholestasis [Recovering/Resolving]
  - Eosinophil count increased [Recovering/Resolving]
  - Urticaria [Recovered/Resolved]
  - Ecchymosis [Recovered/Resolved with Sequelae]
  - Tremor [Unknown]
  - Tinnitus [Unknown]
  - Syncope [Unknown]
  - Retching [Unknown]
  - Cushingoid [Unknown]
  - Epstein-Barr virus antibody positive [Unknown]
  - Toxicity to various agents [Unknown]
  - Gallbladder disorder [Unknown]
  - Haemorrhage [Unknown]
  - Oedema [Unknown]
  - Constipation [Unknown]
  - Asthma [Unknown]
  - Candida infection [Unknown]
  - Hepatic enzyme increased [Unknown]
  - Coagulation factor decreased [Unknown]
  - Jaundice [Unknown]
  - Fatigue [Unknown]
  - Pain [Unknown]
  - Pruritus [Unknown]
  - Nausea [Unknown]
  - Dizziness [Unknown]
  - Loss of consciousness [Unknown]
  - Vomiting [Unknown]
  - Diarrhoea [Unknown]
